FAERS Safety Report 20820349 (Version 1)
Quarter: 2022Q2

REPORT INFORMATION
  Report Type: Spontaneous
  Country: HU (occurrence: HU)
  Receive Date: 20220512
  Receipt Date: 20220512
  Transmission Date: 20220721
  Serious: Yes (Other)
  Sender: FDA-Public Use
  Company Number: HU-NOVARTISPH-NVSC2022HU106500

PATIENT
  Age: 70 Year
  Sex: Male

DRUGS (3)
  1. TRAMETINIB [Suspect]
     Active Substance: TRAMETINIB
     Indication: Skin squamous cell carcinoma recurrent
     Dosage: UNK
     Route: 065
  2. METFORMIN [Suspect]
     Active Substance: METFORMIN HYDROCHLORIDE
     Indication: Skin squamous cell carcinoma recurrent
     Dosage: 500 MG, TID
     Route: 065
     Dates: start: 201705
  3. AZATHIOPRINE [Concomitant]
     Active Substance: AZATHIOPRINE
     Indication: Myasthenia gravis
     Dosage: 150 MG, QD
     Route: 065
     Dates: start: 2011

REACTIONS (6)
  - Skin squamous cell carcinoma recurrent [Unknown]
  - Malignant neoplasm progression [Unknown]
  - Dermatitis [Recovered/Resolved]
  - Rash [Recovered/Resolved]
  - Product use in unapproved indication [Unknown]
  - Therapy partial responder [Unknown]

NARRATIVE: CASE EVENT DATE: 20180101
